FAERS Safety Report 4706905-6 (Version None)
Quarter: 2005Q2

REPORT INFORMATION
  Report Type: 
  Country: None (occurrence: None)
  Receive Date: 20050630
  Receipt Date: 20050628
  Transmission Date: 20051028
  Serious: Yes (Life-Threatening)
  Sender: FDA-Public Use
  Company Number: 05-06-1117

PATIENT
  Age: 77 Year
  Sex: Male

DRUGS (9)
  1. METFORMIN HCL [Suspect]
     Indication: DIABETES MELLITUS
     Dosage: 850IMG BD ORAL
     Route: 048
     Dates: end: 20050408
  2. ASPIRIN [Concomitant]
  3. FRUSEMIDE [Concomitant]
  4. SIMVASTATIN [Concomitant]
  5. TAZOCIN [Concomitant]
  6. LANSOPRAZOLE [Concomitant]
  7. THIAMINE [Concomitant]
  8. LATANOPROST [Concomitant]
  9. TIMOPTIC [Concomitant]

REACTIONS (4)
  - ACIDOSIS [None]
  - BLOOD POTASSIUM INCREASED [None]
  - DIALYSIS [None]
  - RENAL FAILURE [None]
